FAERS Safety Report 21300570 (Version 4)
Quarter: 2025Q2

REPORT INFORMATION
  Report Type: Spontaneous
  Country: CZ (occurrence: CZ)
  Receive Date: 20220907
  Receipt Date: 20250601
  Transmission Date: 20250717
  Serious: Yes (Other)
  Sender: BRISTOL-MYERS SQUIBB COMPANY
  Company Number: CZ-Accord-263988

PATIENT
  Age: 77 Year
  Sex: Female

DRUGS (21)
  1. APIXABAN [Suspect]
     Active Substance: APIXABAN
     Indication: Ventricular tachycardia
     Dates: start: 2019
  2. PACLITAXEL [Suspect]
     Active Substance: PACLITAXEL
     Indication: Invasive ductal breast carcinoma
     Dosage: WEEKLY
     Dates: start: 202112
  3. ANASTROZOLE [Suspect]
     Active Substance: ANASTROZOLE
     Indication: Invasive ductal breast carcinoma
     Dates: start: 202002, end: 202103
  4. DENOSUMAB [Concomitant]
     Active Substance: DENOSUMAB
     Indication: Breast cancer
  5. DENOSUMAB [Concomitant]
     Active Substance: DENOSUMAB
  6. DENOSUMAB [Concomitant]
     Active Substance: DENOSUMAB
  7. DENOSUMAB [Concomitant]
     Active Substance: DENOSUMAB
  8. DENOSUMAB [Concomitant]
     Active Substance: DENOSUMAB
  9. DENOSUMAB [Concomitant]
     Active Substance: DENOSUMAB
  10. DENOSUMAB [Concomitant]
     Active Substance: DENOSUMAB
  11. DENOSUMAB [Concomitant]
     Active Substance: DENOSUMAB
  12. PALBOCICLIB [Concomitant]
     Active Substance: PALBOCICLIB
     Indication: Invasive ductal breast carcinoma
     Dosage: FREQUENCY: WEEKLY
     Dates: start: 202103
  13. REMDESIVIR [Concomitant]
     Active Substance: REMDESIVIR
     Indication: COVID-19
  14. REMDESIVIR [Concomitant]
     Active Substance: REMDESIVIR
  15. REMDESIVIR [Concomitant]
     Active Substance: REMDESIVIR
  16. REMDESIVIR [Concomitant]
     Active Substance: REMDESIVIR
  17. REMDESIVIR [Concomitant]
     Active Substance: REMDESIVIR
  18. REMDESIVIR [Concomitant]
     Active Substance: REMDESIVIR
  19. REMDESIVIR [Concomitant]
     Active Substance: REMDESIVIR
  20. REMDESIVIR [Concomitant]
     Active Substance: REMDESIVIR
  21. FULVESTRANT [Concomitant]
     Active Substance: FULVESTRANT
     Indication: Invasive ductal breast carcinoma
     Dates: start: 202103

REACTIONS (9)
  - Fatigue [Unknown]
  - Tumour marker increased [Unknown]
  - Ischaemic stroke [Recovered/Resolved]
  - Back pain [Unknown]
  - Malaise [Unknown]
  - Hypersensitivity [Unknown]
  - Malignant neoplasm progression [Unknown]
  - Rash pruritic [Unknown]
  - Off label use [Unknown]

NARRATIVE: CASE EVENT DATE: 20200101
